FAERS Safety Report 12410645 (Version 3)
Quarter: 2016Q3

REPORT INFORMATION
  Report Type: Spontaneous
  Country: US (occurrence: US)
  Receive Date: 20160527
  Receipt Date: 20160824
  Transmission Date: 20161109
  Serious: No
  Sender: FDA-Public Use
  Company Number: US-009507513-1605USA008710

PATIENT
  Age: 88 Year
  Sex: Female

DRUGS (3)
  1. PRINIVIL [Concomitant]
     Active Substance: LISINOPRIL
     Dosage: UNK
  2. BELSOMRA [Suspect]
     Active Substance: SUVOREXANT
     Indication: INSOMNIA
     Dosage: 10 MG/ 1 DAILY
     Route: 048
  3. ZETIA [Concomitant]
     Active Substance: EZETIMIBE
     Dosage: UNK

REACTIONS (1)
  - Drug ineffective [Unknown]
